FAERS Safety Report 6645804-X (Version None)
Quarter: 2010Q1

REPORT INFORMATION
  Report Type: 
  Country: None (occurrence: None)
  Receive Date: 20100323
  Receipt Date: 20100315
  Transmission Date: 20100710
  Serious: Yes (Life-Threatening, Other)
  Sender: FDA-Public Use
  Company Number: IT-ELI_LILLY_AND_COMPANY-IT201002005814

PATIENT
  Sex: Male

DRUGS (3)
  1. HUMALOG [Suspect]
     Indication: DIABETES MELLITUS
     Dosage: UNK, 4/D
     Route: 058
  2. HUMALOG [Suspect]
     Dosage: UNK, DAILY (1/D)
     Route: 058
  3. HUMALOG [Suspect]
     Indication: DIABETES MELLITUS
     Dosage: 38 IU, 3/D
     Route: 058

REACTIONS (5)
  - COMA [None]
  - DRUG DISPENSING ERROR [None]
  - HYPERGLYCAEMIA [None]
  - HYPOGLYCAEMIA [None]
  - INCORRECT DOSE ADMINISTERED [None]
